FAERS Safety Report 7761464-9 (Version None)
Quarter: 2011Q3

REPORT INFORMATION
  Report Type: 
  Country: None (occurrence: None)
  Receive Date: 20110915
  Receipt Date: 20110428
  Transmission Date: 20111222
  Serious: Yes (Hospitalization)
  Sender: FDA-Public Use
  Company Number: FR-20110084

PATIENT
  Age: 35 Year
  Sex: Female

DRUGS (8)
  1. AMLODIPINE [Concomitant]
  2. ATORVASTATIN CALCIUM [Concomitant]
  3. IMOVANE (ZOPICLONE) [Concomitant]
  4. ASPIRIN [Concomitant]
  5. HEXABRIX [Suspect]
     Indication: ARTERIOGRAM CORONARY
     Dosage: INTRAVENOUS (NOT OTHERWISE SPECIFIED)
     Route: 042
     Dates: start: 20010101, end: 20110101
  6. PREVISCAN (FLUINDIONE) [Concomitant]
  7. FUROSEMIDE [Concomitant]
  8. APROVEL (IRBESARTAN) [Concomitant]

REACTIONS (8)
  - CIRCULATORY COLLAPSE [None]
  - LACTIC ACIDOSIS [None]
  - BRADYCARDIA [None]
  - HYPERSENSITIVITY [None]
  - LOSS OF CONSCIOUSNESS [None]
  - HAEMOLYSIS [None]
  - SYNCOPE [None]
  - HYPOTENSION [None]
